FAERS Safety Report 11327984 (Version 1)
Quarter: 2015Q3

REPORT INFORMATION
  Report Type: Spontaneous
  Country: US (occurrence: US)
  Receive Date: 20150731
  Receipt Date: 20150731
  Transmission Date: 20151125
  Serious: Yes (Other)
  Sender: FDA-Public Use
  Company Number: US-TEVA-582218USA

PATIENT
  Age: 68 Year
  Sex: Female

DRUGS (12)
  1. VITAMIN C [Concomitant]
     Active Substance: ASCORBIC ACID
     Route: 065
  2. COPAXONE [Suspect]
     Active Substance: GLATIRAMER ACETATE
     Dates: start: 2014
  3. CHOLESTYRAMINE RESIN [Concomitant]
     Active Substance: CHOLESTYRAMINE
     Route: 065
  4. FORTEO [Concomitant]
     Active Substance: TERIPARATIDE
     Route: 065
  5. CLONIDINE. [Concomitant]
     Active Substance: CLONIDINE
     Route: 065
  6. GABAPENTIN. [Concomitant]
     Active Substance: GABAPENTIN
     Route: 065
  7. GARLIC. [Concomitant]
     Active Substance: GARLIC
     Route: 065
  8. AMPYRA [Suspect]
     Active Substance: DALFAMPRIDINE
     Route: 065
     Dates: start: 20110311
  9. METOPROLOL [Concomitant]
     Active Substance: METOPROLOL
     Route: 065
  10. VITAMIN B12 [Concomitant]
     Active Substance: CYANOCOBALAMIN
     Route: 065
  11. CALCIUM [Concomitant]
     Active Substance: CALCIUM
     Route: 065
  12. FISH OIL [Concomitant]
     Active Substance: FISH OIL
     Route: 065

REACTIONS (9)
  - Injection site erythema [Unknown]
  - Fine motor skill dysfunction [Unknown]
  - Abasia [Unknown]
  - Diplopia [Unknown]
  - Injection site mass [Unknown]
  - Trigeminal neuralgia [Not Recovered/Not Resolved]
  - Injection site reaction [Unknown]
  - Injection site vesicles [Unknown]
  - Rash [Unknown]

NARRATIVE: CASE EVENT DATE: 20150608
